FAERS Safety Report 6407611-2 (Version None)
Quarter: 2009Q4

REPORT INFORMATION
  Report Type: 
  Country: None (occurrence: None)
  Receive Date: 20091020
  Receipt Date: 20091017
  Transmission Date: 20100525
  Serious: No
  Sender: FDA-Public Use
  Company Number: US-B.I. PHARMACEUTICALS,INC./RIDGEFIELD-2009-BP-12128BP

PATIENT
  Age: 26 Year
  Sex: Male

DRUGS (2)
  1. ZANTAC 75 [Suspect]
     Indication: CHEST PAIN
     Dosage: 75 MG
     Route: 048
     Dates: start: 20091017
  2. TUMS [Suspect]
     Indication: CHEST PAIN
     Dates: start: 20091017

REACTIONS (1)
  - DYSPEPSIA [None]
